FAERS Safety Report 17505881 (Version 1)
Quarter: 2020Q1

REPORT INFORMATION
  Report Type: Spontaneous
  Country: FR (occurrence: FR)
  Receive Date: 20200306
  Receipt Date: 20200306
  Transmission Date: 20200409
  Serious: Yes (Other)
  Sender: FDA-Public Use
  Company Number: FR-SUN PHARMACEUTICAL INDUSTRIES LTD-2020R1-239247

PATIENT
  Age: 28 Year
  Sex: Female

DRUGS (3)
  1. LABETALOL [Suspect]
     Active Substance: LABETALOL\LABETALOL HYDROCHLORIDE
     Indication: BLOOD PRESSURE MEASUREMENT
     Dosage: UNK
     Route: 065
  2. NICARDIPINE [Suspect]
     Active Substance: NICARDIPINE
     Indication: BLOOD PRESSURE MEASUREMENT
     Dosage: UNK
     Route: 065
  3. BETAMETHASONE. [Suspect]
     Active Substance: BETAMETHASONE
     Indication: FOETAL GROWTH RESTRICTION
     Dosage: 12 MILLIGRAM, DAILY, DIVIDED DOSE
     Route: 065

REACTIONS (7)
  - Premature rupture of membranes [Unknown]
  - Premature delivery [Unknown]
  - Pulmonary oedema [Not Recovered/Not Resolved]
  - Exposure during pregnancy [Unknown]
  - Hypertension [Unknown]
  - Selective abortion [Unknown]
  - Foetal distress syndrome [Unknown]
